FAERS Safety Report 22154404 (Version 1)
Quarter: 2023Q1

REPORT INFORMATION
  Report Type: Spontaneous
  Country: US (occurrence: None)
  Receive Date: 20230330
  Receipt Date: 20230330
  Transmission Date: 20230418
  Serious: Yes (Death, Life-Threatening, Hospitalization, Other)
  Sender: FDA-Public Use
  Company Number: US-MLMSERVICE-20230309-4156305-1

PATIENT
  Age: 35 Year
  Sex: Female

DRUGS (2)
  1. KETOROLAC [Suspect]
     Active Substance: KETOROLAC TROMETHAMINE
     Indication: Alcohol poisoning
     Dosage: UNKNOWN
     Route: 042
  2. ONDANSETRON [Suspect]
     Active Substance: ONDANSETRON
     Indication: Alcohol poisoning
     Dosage: UNKNOWN
     Route: 042

REACTIONS (9)
  - Ventricular fibrillation [Fatal]
  - Left ventricular dysfunction [Fatal]
  - Ventricular tachycardia [Fatal]
  - Brain injury [Fatal]
  - Hypokalaemia [Recovered/Resolved]
  - Long QT syndrome [Fatal]
  - Cardiac arrest [Fatal]
  - Ventricular extrasystoles [Fatal]
  - Hypomagnesaemia [Recovered/Resolved]
